FAERS Safety Report 18490858 (Version 1)
Quarter: 2020Q4

REPORT INFORMATION
  Report Type: Spontaneous
  Country: GB (occurrence: GB)
  Receive Date: 20201111
  Receipt Date: 20201111
  Transmission Date: 20210114
  Serious: Yes (Hospitalization)
  Sender: FDA-Public Use
  Company Number: GB-TEVA-2020-GB-1846921

PATIENT
  Age: 58 Year
  Sex: Male
  Weight: 127 kg

DRUGS (16)
  1. LISINOPRIL. [Suspect]
     Active Substance: LISINOPRIL
     Dosage: 30 MG
     Route: 048
     Dates: start: 20170628, end: 20201014
  2. METFORMIN [Suspect]
     Active Substance: METFORMIN HYDROCHLORIDE
     Dosage: 2 GRAM
     Route: 048
     Dates: start: 20101008, end: 20201014
  3. OMEPRAZOLE. [Concomitant]
     Active Substance: OMEPRAZOLE
  4. FUROSEMIDE. [Suspect]
     Active Substance: FUROSEMIDE
     Dosage: 40 MG
     Route: 048
     Dates: start: 20160517, end: 20201014
  5. FEXOFENADINE HYDROCHLORIDE. [Concomitant]
     Active Substance: FEXOFENADINE HYDROCHLORIDE
  6. ALLOPURINOL. [Concomitant]
     Active Substance: ALLOPURINOL
  7. DABIGATRAN [Concomitant]
     Active Substance: DABIGATRAN
  8. TENSIPINE MR [Concomitant]
     Active Substance: NIFEDIPINE
  9. PREGABALIN. [Concomitant]
     Active Substance: PREGABALIN
  10. SPIRONOLACTONE. [Concomitant]
     Active Substance: SPIRONOLACTONE
  11. QUININE BISULFATE [Concomitant]
     Active Substance: QUININE BISULFATE
  12. BISOPROLOL [Concomitant]
     Active Substance: BISOPROLOL
  13. GLICLAZIDE [Concomitant]
     Active Substance: GLICLAZIDE
  14. DIGOXIN. [Concomitant]
     Active Substance: DIGOXIN
  15. SIMVASTATIN. [Concomitant]
     Active Substance: SIMVASTATIN
  16. COCODAMOL [Concomitant]
     Active Substance: ACETAMINOPHEN\CODEINE PHOSPHATE

REACTIONS (2)
  - Dehydration [Recovering/Resolving]
  - Acute kidney injury [Recovering/Resolving]

NARRATIVE: CASE EVENT DATE: 20201013
